FAERS Safety Report 7749542-1 (Version None)
Quarter: 2011Q3

REPORT INFORMATION
  Report Type: 
  Country: None (occurrence: None)
  Receive Date: 20110914
  Receipt Date: 20110902
  Transmission Date: 20111222
  Serious: Yes (Hospitalization)
  Sender: FDA-Public Use
  Company Number: FR-ELI_LILLY_AND_COMPANY-FR201107007293

PATIENT
  Age: 73 Year
  Sex: Female

DRUGS (8)
  1. ESCITALOPRAM [Concomitant]
  2. ZOLPIDEM [Concomitant]
  3. IMURAN [Concomitant]
     Indication: CROHN'S DISEASE
  4. FORTEO [Suspect]
     Indication: OSTEOPOROSIS
     Dosage: 20 UG, QD
     Route: 058
     Dates: start: 20100910, end: 20110701
  5. URSOLVAN [Concomitant]
     Dosage: UNK
  6. XANAX [Concomitant]
  7. DEBRIDAT [Concomitant]
  8. NEXIUM [Concomitant]

REACTIONS (1)
  - CROHN'S DISEASE [None]
